FAERS Safety Report 7387120-7 (Version None)
Quarter: 2011Q1

REPORT INFORMATION
  Report Type: 
  Country: None (occurrence: None)
  Receive Date: 20110331
  Receipt Date: 20110322
  Transmission Date: 20110831
  Serious: Yes (Hospitalization)
  Sender: FDA-Public Use
  Company Number: A0858977A

PATIENT
  Sex: Male
  Weight: 113.6 kg

DRUGS (8)
  1. GLUCOTROL [Concomitant]
  2. ZETIA [Concomitant]
  3. AVALIDE [Concomitant]
  4. PREVACID [Concomitant]
  5. LIPITOR [Concomitant]
  6. TIAZAC [Concomitant]
  7. AVANDIA [Suspect]
     Dosage: 4MG PER DAY
     Route: 048
     Dates: end: 20090101
  8. CLARITIN [Concomitant]

REACTIONS (2)
  - MYOCARDIAL INFARCTION [None]
  - CARDIAC FAILURE CONGESTIVE [None]
